FAERS Safety Report 20841514 (Version 2)
Quarter: 2022Q2

REPORT INFORMATION
  Report Type: Spontaneous
  Country: DE (occurrence: DE)
  Receive Date: 20220518
  Receipt Date: 20220617
  Transmission Date: 20220720
  Serious: Yes (Hospitalization, Other)
  Sender: FDA-Public Use
  Company Number: DE-ORGANON-O2205DEU000974

PATIENT
  Age: 26 Year
  Sex: Male
  Weight: 60 kg

DRUGS (3)
  1. DESLORATADINE [Suspect]
     Active Substance: DESLORATADINE
     Indication: Mast cell activation syndrome
     Dosage: DOSE: 1-0-1
     Route: 048
     Dates: start: 201710, end: 201910
  2. DESLORATADINE [Suspect]
     Active Substance: DESLORATADINE
     Indication: Mast cell activation syndrome
     Dosage: DOSE: 1-0-1
     Route: 048
     Dates: start: 202110, end: 202203
  3. DNCG [Concomitant]
     Indication: Mast cell activation syndrome
     Dosage: DOSE: 2-2-2
     Dates: start: 201710, end: 201910

REACTIONS (4)
  - Nephrolithiasis [Recovered/Resolved]
  - Nephrolithiasis [Recovered/Resolved]
  - Urinary tract infection [Recovered/Resolved]
  - Urinary tract infection [Recovered/Resolved]

NARRATIVE: CASE EVENT DATE: 20171001
